FAERS Safety Report 6537411-4 (Version None)
Quarter: 2010Q1

REPORT INFORMATION
  Report Type: 
  Country: None (occurrence: None)
  Receive Date: 20100114
  Receipt Date: 20100113
  Transmission Date: 20100710
  Serious: No
  Sender: FDA-Public Use
  Company Number: DE-BRACCO-BRO-004203

PATIENT
  Sex: Female
  Weight: 0.62 kg

DRUGS (7)
  1. IOPAMIDOL [Suspect]
     Indication: DIAGNOSTIC PROCEDURE
     Route: 042
  2. IOPAMIDOL [Suspect]
     Indication: DRUG INEFFECTIVE
     Route: 042
  3. IOPAMIDOL [Suspect]
     Indication: CHEST X-RAY
     Route: 042
  4. FUROSEMIDE [Concomitant]
     Route: 042
  5. DOPAMINE HCL [Concomitant]
     Route: 065
  6. IOTALAMATE [Suspect]
     Indication: DIAGNOSTIC PROCEDURE
     Route: 042
  7. IOTALAMATE [Suspect]
     Indication: CHEST X-RAY
     Route: 042

REACTIONS (4)
  - ACCIDENTAL OVERDOSE [None]
  - ANURIA [None]
  - CEREBRAL HAEMORRHAGE [None]
  - CONVULSION [None]
